FAERS Safety Report 25459683 (Version 4)
Quarter: 2025Q3

REPORT INFORMATION
  Report Type: Spontaneous
  Country: BR (occurrence: BR)
  Receive Date: 20250620
  Receipt Date: 20250922
  Transmission Date: 20251021
  Serious: Yes (Other)
  Sender: ABBVIE
  Company Number: BR-ABBOTT-2025A-1400012

PATIENT
  Sex: Male

DRUGS (1)
  1. CREON [Suspect]
     Active Substance: PANCRELIPASE AMYLASE\PANCRELIPASE LIPASE\PANCRELIPASE PROTEASE
     Indication: Product used for unknown indication
     Dosage: MANUFACTURE DATE: 07 JUN 2024, 25.000
     Route: 048

REACTIONS (4)
  - Pancreatic carcinoma [Unknown]
  - Chemotherapy [Unknown]
  - Product physical issue [Unknown]
  - Poor quality product administered [Unknown]
